FAERS Safety Report 24648673 (Version 2)
Quarter: 2024Q4

REPORT INFORMATION
  Report Type: Spontaneous
  Country: ES (occurrence: ES)
  Receive Date: 20241121
  Receipt Date: 20241219
  Transmission Date: 20250114
  Serious: Yes (Hospitalization)
  Sender: ELI LILLY AND COMPANY
  Company Number: ES-ELI_LILLY_AND_COMPANY-ES202411009876

PATIENT
  Age: 55 Year
  Sex: Male
  Weight: 70 kg

DRUGS (3)
  1. MOUNJARO [Suspect]
     Active Substance: TIRZEPATIDE
     Indication: Weight control
     Dosage: 2.5 MG, WEEKLY (1/W)
     Route: 065
     Dates: start: 20240730, end: 20240927
  2. MOUNJARO [Suspect]
     Active Substance: TIRZEPATIDE
     Indication: Essential hypertension
  3. AMLODIPINE BESYLATE\VALSARTAN [Concomitant]
     Active Substance: AMLODIPINE BESYLATE\VALSARTAN
     Indication: Essential hypertension
     Dosage: UNK UNK, DAILY
     Route: 065

REACTIONS (6)
  - Pain in extremity [Recovering/Resolving]
  - Fatigue [Recovering/Resolving]
  - Protein-losing gastroenteropathy [Recovered/Resolved]
  - Oedema peripheral [Recovered/Resolved]
  - Blood potassium decreased [Recovered/Resolved]
  - Blood phosphorus decreased [Recovered/Resolved]

NARRATIVE: CASE EVENT DATE: 20241016
